FAERS Safety Report 20154161 (Version 1)
Quarter: 2021Q4

REPORT INFORMATION
  Report Type: Report from Study
  Country: US (occurrence: US)
  Receive Date: 20211207
  Receipt Date: 20211207
  Transmission Date: 20220303
  Serious: Yes (Other)
  Sender: FDA-Public Use
  Company Number: US-ABBVIE-21K-163-4187238-00

PATIENT
  Sex: Female

DRUGS (1)
  1. IMBRUVICA [Suspect]
     Active Substance: IBRUTINIB
     Indication: Waldenstrom^s macroglobulinaemia
     Route: 048
     Dates: start: 20190912

REACTIONS (5)
  - Cataract [Unknown]
  - Chondrocalcinosis pyrophosphate [Recovered/Resolved]
  - Depression [Unknown]
  - Tooth infection [Unknown]
  - Arthralgia [Unknown]
